FAERS Safety Report 12263045 (Version 1)
Quarter: 2016Q2

REPORT INFORMATION
  Report Type: Spontaneous
  Country: US (occurrence: US)
  Receive Date: 20160413
  Receipt Date: 20160413
  Transmission Date: 20160815
  Serious: No
  Sender: FDA-Public Use
  Company Number: US-ACTAVIS-2015-15107

PATIENT
  Sex: Male

DRUGS (1)
  1. PERMETHRIN (AMALLC) [Suspect]
     Active Substance: PERMETHRIN
     Indication: ACARODERMATITIS
     Dosage: UNK UNK, UNKNOWN
     Route: 065

REACTIONS (2)
  - Product use issue [Unknown]
  - Drug ineffective [Unknown]
